FAERS Safety Report 6048037-3 (Version None)
Quarter: 2009Q1

REPORT INFORMATION
  Report Type: 
  Country: None (occurrence: None)
  Receive Date: 20090121
  Receipt Date: 20090121
  Transmission Date: 20090719
  Serious: No
  Sender: FDA-Public Use
  Company Number: None

PATIENT
  Sex: Female
  Weight: 64.4108 kg

DRUGS (1)
  1. ACTONEL [Suspect]
     Indication: OSTEOPENIA
     Dosage: ONCE A WEEK ORAL
     Route: 048
     Dates: start: 20080901, end: 20081201

REACTIONS (4)
  - BACK PAIN [None]
  - DEPRESSION [None]
  - KYPHOSIS [None]
  - VERTEBRAL WEDGING [None]
